FAERS Safety Report 8936612 (Version 1)
Quarter: 2012Q4

REPORT INFORMATION
  Report Type: 
  Country: MX (occurrence: MX)
  Receive Date: 20121130
  Receipt Date: 20121130
  Transmission Date: 20130627
  Serious: Yes (Death)
  Sender: FDA-Public Use
  Company Number: PHHY2012MX109809

PATIENT
  Age: 66 Year
  Sex: Female

DRUGS (3)
  1. ACLASTA [Suspect]
     Indication: OSTEOPOROSIS
     Dosage: 5 mg/100ml, UNK
     Route: 042
  2. RANITIDINE [Concomitant]
     Indication: GASTRITIS
     Dosage: 1 DF, UNK
  3. COMETRASOL [Concomitant]

REACTIONS (1)
  - Death [Fatal]
